FAERS Safety Report 8332573-0 (Version None)
Quarter: 2012Q1

REPORT INFORMATION
  Report Type: 
  Country: None (occurrence: None)
  Receive Date: 20120327
  Receipt Date: 20100907
  Transmission Date: 20120608
  Serious: Yes (Other)
  Sender: FDA-Public Use
  Company Number: PHEH2009US02775

PATIENT
  Age: 62 Year
  Sex: Male

DRUGS (6)
  1. TOPROL-XL [Concomitant]
  2. ANTIHYPERTENSIVE DRUGS (NO INGREDIENTS/SUBSTANCES) [Concomitant]
  3. VITAMIN TAB [Concomitant]
  4. IRON [Concomitant]
  5. HYDROCHLOROTHIAZIDE [Concomitant]
  6. GLEEVEC [Suspect]
     Dosage: 400MG, QD
     Dates: start: 20081101

REACTIONS (8)
  - EYE HAEMORRHAGE [None]
  - BONE PAIN [None]
  - ASTHENIA [None]
  - DIARRHOEA [None]
  - NECK PAIN [None]
  - EYE SWELLING [None]
  - MUSCLE SPASMS [None]
  - MUSCLE TIGHTNESS [None]
